FAERS Safety Report 14699338 (Version 1)
Quarter: 2018Q1

REPORT INFORMATION
  Report Type: Spontaneous
  Country: US (occurrence: US)
  Receive Date: 20180329
  Receipt Date: 20180329
  Transmission Date: 20180509
  Serious: Yes (Hospitalization)
  Sender: FDA-Public Use
  Company Number: None

PATIENT
  Age: 32 Year
  Sex: Female

DRUGS (13)
  1. VALIUM [Concomitant]
     Active Substance: DIAZEPAM
  2. PERPHENAZINE. [Concomitant]
     Active Substance: PERPHENAZINE
  3. ENBREL [Suspect]
     Active Substance: ETANERCEPT
     Indication: RHEUMATOID ARTHRITIS
     Dosage: ?          OTHER FREQUENCY:WEEKLY;?
     Route: 058
     Dates: start: 20140211
  4. CALCIUM CARB [Concomitant]
     Active Substance: CALCIUM CARBONATE
  5. EFFEXOR XR [Concomitant]
     Active Substance: VENLAFAXINE HYDROCHLORIDE
  6. WELLBUTRIN [Concomitant]
     Active Substance: BUPROPION HYDROCHLORIDE
  7. CALCITRIOL. [Concomitant]
     Active Substance: CALCITRIOL
  8. FOLIC ACID. [Concomitant]
     Active Substance: FOLIC ACID
  9. DIVALPROEX [Concomitant]
     Active Substance: DIVALPROEX SODIUM
  10. CLOZAPINE. [Concomitant]
     Active Substance: CLOZAPINE
  11. LEVOTHYROXIN [Concomitant]
     Active Substance: LEVOTHYROXINE
  12. CYMBALTA [Concomitant]
     Active Substance: DULOXETINE HYDROCHLORIDE
  13. CLONAZEPAM. [Concomitant]
     Active Substance: CLONAZEPAM

REACTIONS (2)
  - Hallucination, auditory [None]
  - Injection site bruising [None]

NARRATIVE: CASE EVENT DATE: 20180314
